FAERS Safety Report 6448688-8 (Version None)
Quarter: 2009Q4

REPORT INFORMATION
  Report Type: 
  Country: None (occurrence: None)
  Receive Date: 20091119
  Receipt Date: 20091119
  Transmission Date: 20100525
  Serious: Yes (Death)
  Sender: FDA-Public Use
  Company Number: None

PATIENT
  Sex: Male

DRUGS (7)
  1. REVLIMID [Suspect]
     Indication: CHRONIC LYMPHOCYTIC LEUKAEMIA
     Dosage: 5MG DAILY ORALLY
     Route: 048
  2. SEPTRA DS [Concomitant]
  3. METHADONE HCL [Concomitant]
  4. VICODIN [Concomitant]
  5. LEVOTHROID [Concomitant]
  6. TERAZOSIN HCL [Concomitant]
  7. LOVASTATIN [Concomitant]

REACTIONS (1)
  - PANCYTOPENIA [None]
